FAERS Safety Report 9163328 (Version 1)
Quarter: 2013Q1

REPORT INFORMATION
  Report Type: Spontaneous
  Country: US (occurrence: None)
  Receive Date: 20130222
  Receipt Date: 20130222
  Transmission Date: 20140127
  Serious: Yes (Other)
  Sender: FDA-Public Use
  Company Number: 001481057A

PATIENT
  Age: 22 Year
  Sex: Female

DRUGS (3)
  1. PROACTIV RENEWING CLEANSER [Suspect]
     Dosage: DERMAL, ONCE DAILY
     Dates: start: 20130129, end: 20130131
  2. PROACTIV REPAIRING TREATMENT [Suspect]
     Indication: ACNE
     Dosage: ONCE DALY, DERMAL
     Dates: start: 20130129, end: 20130131
  3. PROACTIV DEEP CLEANSING WASH [Suspect]
     Indication: ACNE
     Dosage: ONCE DAILY, DERMAL
     Dates: start: 20130129, end: 20130131

REACTIONS (2)
  - Swelling face [None]
  - Eye swelling [None]
